FAERS Safety Report 5284475-4 (Version None)
Quarter: 2007Q2

REPORT INFORMATION
  Report Type: 
  Country: None (occurrence: None)
  Receive Date: 20070403
  Receipt Date: 20070329
  Transmission Date: 20071010
  Serious: Yes (Hospitalization, Disabling)
  Sender: FDA-Public Use
  Company Number: JP-SP-2007-00394

PATIENT
  Sex: Male

DRUGS (2)
  1. IMMUCYST [Suspect]
     Indication: BLADDER CANCER
     Route: 065
  2. CIMETIDINE HCL [Concomitant]

REACTIONS (5)
  - DYSURIA [None]
  - HAEMATURIA [None]
  - HYPERTONIC BLADDER [None]
  - POLLAKIURIA [None]
  - URINARY BLADDER ATROPHY [None]
